FAERS Safety Report 7170011-4 (Version None)
Quarter: 2010Q4

REPORT INFORMATION
  Report Type: 
  Country: None (occurrence: None)
  Receive Date: 20101217
  Receipt Date: 20101216
  Transmission Date: 20110411
  Serious: Yes (Hospitalization)
  Sender: FDA-Public Use
  Company Number: CH-BAYER-2010-005070

PATIENT
  Age: 66 Year
  Sex: Female

DRUGS (11)
  1. ASPIRIN CARDIO [Suspect]
     Dosage: 100 MG, QD
     Route: 048
     Dates: start: 20101001
  2. PRASUGREL [Suspect]
     Dosage: 10 MG, QD
     Route: 048
     Dates: start: 20101001
  3. CITALOPRAM [Suspect]
     Dosage: 30 MG, UNK
  4. BELOC ZOK [Concomitant]
  5. DANCOR [Concomitant]
  6. EUTHYROX [Concomitant]
  7. PANTOZOL [Concomitant]
  8. LEPONEX [Concomitant]
  9. TRUXAL [Concomitant]
  10. AKINETON [Concomitant]
  11. AMITRIPTYLINE HCL [Concomitant]

REACTIONS (1)
  - EPISTAXIS [None]
